FAERS Safety Report 16845446 (Version 2)
Quarter: 2019Q3

REPORT INFORMATION
  Report Type: Spontaneous
  Country: US (occurrence: US)
  Receive Date: 20190924
  Receipt Date: 20190927
  Transmission Date: 20191005
  Serious: No
  Sender: FDA-Public Use
  Company Number: US-TEVA-2019-US-1110671

PATIENT
  Sex: Female
  Weight: 77 kg

DRUGS (5)
  1. SUDAFED [Concomitant]
     Active Substance: PSEUDOEPHEDRINE HYDROCHLORIDE
     Indication: HYPERSENSITIVITY
  2. PROAIR HFA [Suspect]
     Active Substance: ALBUTEROL SULFATE
     Indication: ASTHMA
     Dosage: ONCE DAILY TO EVERY OTHER DAY,
     Dates: start: 2016
  3. ZYRTEC [Concomitant]
     Active Substance: CETIRIZINE HYDROCHLORIDE
     Indication: HYPERSENSITIVITY
  4. PROAIR HFA [Suspect]
     Active Substance: ALBUTEROL SULFATE
     Indication: DYSPNOEA
  5. FLONASE [Concomitant]
     Active Substance: FLUTICASONE PROPIONATE

REACTIONS (9)
  - Dyspnoea [Unknown]
  - Gastrooesophageal reflux disease [Unknown]
  - Breath alcohol test positive [Unknown]
  - Inappropriate schedule of product administration [Unknown]
  - Eructation [Unknown]
  - Cough [Unknown]
  - Heart rate increased [Unknown]
  - Chest pain [Recovered/Resolved]
  - Drug ineffective [Unknown]
